FAERS Safety Report 5243128-9 (Version None)
Quarter: 2007Q1

REPORT INFORMATION
  Report Type: 
  Country: None (occurrence: None)
  Receive Date: 20070221
  Receipt Date: 20070213
  Transmission Date: 20070707
  Serious: Yes (Other)
  Sender: FDA-Public Use
  Company Number: AU-ABBOTT-07P-008-0357061-00

PATIENT
  Age: 34 Year
  Sex: Male

DRUGS (3)
  1. EPILIM TABLETS [Suspect]
     Indication: DEPRESSION
     Route: 048
     Dates: start: 20050501, end: 20061201
  2. EPILIM TABLETS [Suspect]
     Indication: AFFECTIVE DISORDER
  3. DOSULEPIN [Concomitant]
     Indication: DEPRESSION
     Route: 048
     Dates: start: 20060401

REACTIONS (1)
  - CONVULSION [None]
